FAERS Safety Report 19509134 (Version 1)
Quarter: 2021Q3

REPORT INFORMATION
  Report Type: Spontaneous
  Country: US (occurrence: US)
  Receive Date: 20210709
  Receipt Date: 20210709
  Transmission Date: 20211014
  Serious: Yes (Life-Threatening, Hospitalization, Other)
  Sender: FDA-Public Use
  Company Number: US-APOTEX-2021AP015819

PATIENT
  Age: 20 Year
  Sex: Female

DRUGS (3)
  1. PAROXETINE. [Suspect]
     Active Substance: PAROXETINE
     Indication: POST-TRAUMATIC STRESS DISORDER
     Dosage: 40 MG, 1D
     Route: 065
  2. ISOTRETINOIN. [Interacting]
     Active Substance: ISOTRETINOIN
     Indication: ACNE
     Dosage: UNK
     Route: 065
  3. PAROXETINE. [Interacting]
     Active Substance: PAROXETINE
     Dosage: 280 MG, 1D
     Route: 065

REACTIONS (18)
  - Cardiotoxicity [Recovered/Resolved]
  - Hypertonia [Recovered/Resolved]
  - Serotonin syndrome [Recovered/Resolved]
  - Seizure [Recovered/Resolved]
  - Flushing [Recovered/Resolved]
  - Generalised tonic-clonic seizure [Recovered/Resolved]
  - Restlessness [Recovered/Resolved]
  - Clonus [Recovered/Resolved]
  - Drug interaction [Unknown]
  - Tachycardia [Recovered/Resolved]
  - Agitation [Recovered/Resolved]
  - Postictal state [Recovered/Resolved]
  - Tremor [Recovered/Resolved]
  - Suicide attempt [Unknown]
  - Electrocardiogram QT prolonged [Recovered/Resolved]
  - Intentional overdose [Unknown]
  - Hyperreflexia [Recovered/Resolved]
  - Tachypnoea [Recovered/Resolved]
